FAERS Safety Report 4714621-X (Version None)
Quarter: 2005Q3

REPORT INFORMATION
  Report Type: 
  Country: None (occurrence: None)
  Receive Date: 20050714
  Receipt Date: 20050714
  Transmission Date: 20060218
  Serious: Yes (Hospitalization)
  Sender: FDA-Public Use
  Company Number: None

PATIENT
  Sex: Male

DRUGS (9)
  1. VANCOMYCIN [Suspect]
     Indication: BLOOD CULTURE POSITIVE
     Dosage: 1 GM Q 12 HR IV
     Route: 042
     Dates: start: 20050301, end: 20050304
  2. VANCOMYCIN [Suspect]
     Indication: STREPTOCOCCAL INFECTION
     Dosage: 1 GM Q 12 HR IV
     Route: 042
     Dates: start: 20050301, end: 20050304
  3. FOLIC ACID [Concomitant]
  4. HEPARIN [Concomitant]
  5. LACTULOSE [Concomitant]
  6. METOPROLOL SUCCINATE [Concomitant]
  7. MULTI-VITAMIN [Concomitant]
  8. OXYCODONE HCL [Concomitant]
  9. THIAMINE [Concomitant]

REACTIONS (1)
  - RENAL FAILURE ACUTE [None]
